FAERS Safety Report 4898633-1 (Version None)
Quarter: 2006Q1

REPORT INFORMATION
  Report Type: 
  Country: None (occurrence: None)
  Receive Date: 20060127
  Receipt Date: 20060123
  Transmission Date: 20060701
  Serious: Yes (Life-Threatening, Hospitalization)
  Sender: FDA-Public Use
  Company Number: US-2006-001267

PATIENT
  Age: 48 Year
  Sex: Female

DRUGS (1)
  1. MAGNEVIST [Suspect]
     Indication: NUCLEAR MAGNETIC RESONANCE IMAGING BRAIN
     Dosage: 1 DOSE, INTRAVENOUS
     Route: 042
     Dates: start: 20060119, end: 20060119

REACTIONS (5)
  - CARDIAC ARREST [None]
  - CONTRAST MEDIA REACTION [None]
  - ERYTHEMA [None]
  - LARYNGOSPASM [None]
  - NAUSEA [None]
